FAERS Safety Report 23046023 (Version 1)
Quarter: 2023Q4

REPORT INFORMATION
  Report Type: Spontaneous
  Country: DE (occurrence: DE)
  Receive Date: 20231009
  Receipt Date: 20231009
  Transmission Date: 20240109
  Serious: Yes (Other)
  Sender: FDA-Public Use
  Company Number: DE-002147023-NVSC2022DE200951

PATIENT
  Sex: Female

DRUGS (1)
  1. DICLOFENAC [Suspect]
     Active Substance: DICLOFENAC
     Indication: Rheumatoid arthritis
     Dosage: 150-225 MG, QD
     Route: 065

REACTIONS (3)
  - Oligohydramnios [Unknown]
  - Maternal exposure during pregnancy [Unknown]
  - Contraindicated product administered [Unknown]
